FAERS Safety Report 6293430-7 (Version None)
Quarter: 2009Q3

REPORT INFORMATION
  Report Type: 
  Country: None (occurrence: None)
  Receive Date: 20090803
  Receipt Date: 20090727
  Transmission Date: 20100115
  Serious: Yes (Hospitalization)
  Sender: FDA-Public Use
  Company Number: US-BIOGENIDEC-2009BI014472

PATIENT
  Age: 67 Year
  Sex: Female

DRUGS (1)
  1. TYSABRI [Suspect]
     Indication: MULTIPLE SCLEROSIS
     Route: 042
     Dates: start: 20090105

REACTIONS (8)
  - ANGINA PECTORIS [None]
  - BACK INJURY [None]
  - CARDIAC DISORDER [None]
  - DYSPNOEA [None]
  - FALL [None]
  - HYPERTENSION [None]
  - MEMORY IMPAIRMENT [None]
  - PAIN [None]
